FAERS Safety Report 14315355 (Version 2)
Quarter: 2018Q1

REPORT INFORMATION
  Report Type: Report from Study
  Country: US (occurrence: US)
  Receive Date: 20171221
  Receipt Date: 20180125
  Transmission Date: 20180509
  Serious: Yes (Death, Hospitalization)
  Sender: FDA-Public Use
  Company Number: US-ACTELION-A-US2017-162450

PATIENT
  Age: 75 Year
  Sex: Female
  Weight: 61.68 kg

DRUGS (17)
  1. ALBUTEROL. [Concomitant]
     Active Substance: ALBUTEROL
  2. COREG [Concomitant]
     Active Substance: CARVEDILOL
  3. LASIX [Concomitant]
     Active Substance: FUROSEMIDE
  4. PROTONIX [Concomitant]
     Active Substance: PANTOPRAZOLE SODIUM
  5. TYVASO [Suspect]
     Active Substance: TREPROSTINIL
     Indication: PRODUCT USED FOR UNKNOWN INDICATION
     Route: 065
  6. IMURAN [Concomitant]
     Active Substance: AZATHIOPRINE
  7. COZAAR [Concomitant]
     Active Substance: LOSARTAN POTASSIUM
  8. OPSUMIT [Suspect]
     Active Substance: MACITENTAN
     Indication: PULMONARY HYPERTENSION
     Dosage: 10 MG, QD
     Route: 048
     Dates: start: 201603
  9. FLONASE [Concomitant]
     Active Substance: FLUTICASONE PROPIONATE
  10. FOLIC ACID. [Concomitant]
     Active Substance: FOLIC ACID
  11. ALDACTONE [Concomitant]
     Active Substance: SPIRONOLACTONE
  12. ADEMPAS [Concomitant]
     Active Substance: RIOCIGUAT
  13. ACYCLOVIR. [Concomitant]
     Active Substance: ACYCLOVIR
  14. TRAMADOL. [Concomitant]
     Active Substance: TRAMADOL
  15. AMBIEN [Concomitant]
     Active Substance: ZOLPIDEM TARTRATE
  16. ACETYLSALICYLIC ACID [Concomitant]
     Active Substance: ASPIRIN
  17. RECLAST [Concomitant]
     Active Substance: ZOLEDRONIC ACID

REACTIONS (6)
  - Pulseless electrical activity [Not Recovered/Not Resolved]
  - Cardiac arrest [Fatal]
  - Diarrhoea [Recovered/Resolved]
  - Unresponsive to stimuli [Not Recovered/Not Resolved]
  - Productive cough [Unknown]
  - Cough [Unknown]

NARRATIVE: CASE EVENT DATE: 20171210
